FAERS Safety Report 6521558-2 (Version None)
Quarter: 2009Q4

REPORT INFORMATION
  Report Type: 
  Country: None (occurrence: None)
  Receive Date: 20091214
  Receipt Date: 20090707
  Transmission Date: 20100525
  Serious: Yes (Other)
  Sender: FDA-Public Use
  Company Number: 642618

PATIENT
  Age: 59 Year
  Sex: Male

DRUGS (2)
  1. PEGASYS [Suspect]
     Indication: HEPATITIS C
     Dosage: 180 UG 1 PER WEEK
     Dates: start: 20081101
  2. RIBAVIRIN [Suspect]
     Indication: HEPATITIS C
     Dosage: 1 DOSE FORM 2 PER DAY
     Dates: start: 20081101

REACTIONS (9)
  - ALOPECIA [None]
  - ANGER [None]
  - BLISTER [None]
  - DERMATITIS BULLOUS [None]
  - DYSPNOEA [None]
  - IRRITABILITY [None]
  - RASH [None]
  - RED BLOOD CELL COUNT DECREASED [None]
  - SUICIDAL IDEATION [None]
